FAERS Safety Report 4519734-3 (Version None)
Quarter: 2004Q4

REPORT INFORMATION
  Report Type: 
  Country: None (occurrence: None)
  Receive Date: 20041207
  Receipt Date: 20041202
  Transmission Date: 20050328
  Serious: Yes (Hospitalization, Disabling)
  Sender: FDA-Public Use
  Company Number: PHEH2004US12848

PATIENT
  Sex: Female

DRUGS (1)
  1. LAMISIL [Suspect]
     Route: 065

REACTIONS (8)
  - BLOOD DISORDER [None]
  - DIFFICULTY IN WALKING [None]
  - DRUG TOXICITY [None]
  - IMPAIRED DRIVING ABILITY [None]
  - OEDEMA PERIPHERAL [None]
  - ONYCHOMADESIS [None]
  - RASH GENERALISED [None]
  - SKIN DESQUAMATION [None]
